FAERS Safety Report 7714016-0 (Version None)
Quarter: 2011Q3

REPORT INFORMATION
  Report Type: 
  Country: None (occurrence: None)
  Receive Date: 20110826
  Receipt Date: 20110817
  Transmission Date: 20111222
  Serious: Yes (Hospitalization)
  Sender: FDA-Public Use
  Company Number: JP-ASTRAZENECA-2009SE10250

PATIENT
  Age: 74 Year
  Sex: Female

DRUGS (2)
  1. IRESSA [Suspect]
     Indication: LUNG ADENOCARCINOMA
     Route: 048
     Dates: start: 20090120, end: 20090130
  2. IRESSA [Suspect]
     Route: 048
     Dates: start: 20090131, end: 20090216

REACTIONS (2)
  - PULMONARY ALVEOLAR HAEMORRHAGE [None]
  - DIARRHOEA [None]
